FAERS Safety Report 5194761-4 (Version None)
Quarter: 2006Q4

REPORT INFORMATION
  Report Type: 
  Country: None (occurrence: None)
  Receive Date: 20061229
  Receipt Date: 20061208
  Transmission Date: 20070319
  Serious: Yes (Other)
  Sender: FDA-Public Use
  Company Number: US-ELI_LILLY_AND_COMPANY-US200612002082

PATIENT
  Age: 39 Year
  Sex: Male

DRUGS (2)
  1. ZYPREXA [Suspect]
     Indication: SCHIZOPHRENIA, PARANOID TYPE
     Dosage: 15 MG, UNK
  2. ZYPREXA [Suspect]
     Dosage: 20 MG, EACH EVENING
     Dates: start: 20050429

REACTIONS (4)
  - ABDOMINAL PAIN UPPER [None]
  - B-CELL LYMPHOMA [None]
  - LIVER DISORDER [None]
  - LYMPHOMA [None]
